FAERS Safety Report 9981418 (Version 7)
Quarter: 2014Q4

REPORT INFORMATION
  Report Type: Report from Study
  Country: CA (occurrence: CA)
  Receive Date: 20140307
  Receipt Date: 20141014
  Transmission Date: 20150529
  Serious: Yes (Hospitalization, Other)
  Sender: FDA-Public Use
  Company Number: PHHY2013CA103468

PATIENT
  Sex: Female

DRUGS (3)
  1. OCUVITE [Concomitant]
     Active Substance: VITAMINS
  2. TASIGNA [Suspect]
     Active Substance: NILOTINIB
     Indication: CHRONIC MYELOID LEUKAEMIA
     Dosage: 300 MG, BID
     Route: 048
     Dates: start: 20140712, end: 201407
  3. EXEMESTANE. [Concomitant]
     Active Substance: EXEMESTANE

REACTIONS (22)
  - Ischaemia [Unknown]
  - Gait disturbance [Unknown]
  - Dysuria [Unknown]
  - Fatigue [Unknown]
  - Discomfort [Unknown]
  - Constipation [Not Recovered/Not Resolved]
  - Peripheral vascular disorder [Unknown]
  - Venous thrombosis limb [Unknown]
  - Poor peripheral circulation [Unknown]
  - Pain [Unknown]
  - Bronchitis [Unknown]
  - Cystitis [Recovered/Resolved]
  - Dehydration [Unknown]
  - Dry mouth [Unknown]
  - Malaise [Unknown]
  - Haemorrhoids [Unknown]
  - Urinary retention [Unknown]
  - Dyspepsia [Recovering/Resolving]
  - Vomiting [Unknown]
  - Night sweats [Unknown]
  - Micturition urgency [Not Recovered/Not Resolved]
  - Muscle spasms [Unknown]
